FAERS Safety Report 5975275-8 (Version None)
Quarter: 2008Q4

REPORT INFORMATION
  Report Type: 
  Country: None (occurrence: None)
  Receive Date: 20081202
  Receipt Date: 20080526
  Transmission Date: 20090506
  Serious: No
  Sender: FDA-Public Use
  Company Number: US-BAYER-200812067BCC

PATIENT
  Sex: Male

DRUGS (2)
  1. ALEVE [Suspect]
     Indication: GROIN PAIN
     Dosage: AS USED: 220 MG  UNIT DOSE: 220 MG
  2. ASPIRIN [Suspect]
     Indication: GROIN PAIN

REACTIONS (2)
  - FEELING COLD [None]
  - INSOMNIA [None]
